FAERS Safety Report 4475114-0 (Version None)
Quarter: 2004Q3

REPORT INFORMATION
  Report Type: 
  Country: None (occurrence: None)
  Receive Date: 20040923
  Receipt Date: 20040809
  Transmission Date: 20050211
  Serious: No
  Sender: FDA-Public Use
  Company Number: USA040875094

PATIENT
  Age: 82 Year
  Sex: Female

DRUGS (5)
  1. FORTEO [Suspect]
     Indication: OSTEOPOROSIS
     Dates: start: 20040802
  2. OXYCONTIN [Concomitant]
  3. BLOOD PRESSURE MEDICINE [Concomitant]
  4. PEPCID [Concomitant]
  5. HERBAL TABLET [Concomitant]

REACTIONS (2)
  - CRYING [None]
  - MUSCLE CRAMP [None]
